FAERS Safety Report 13901047 (Version 2)
Quarter: 2020Q1

REPORT INFORMATION
  Report Type: Spontaneous
  Country: CA (occurrence: CA)
  Receive Date: 20170824
  Receipt Date: 20200302
  Transmission Date: 20200409
  Serious: Yes (Disabling)
  Sender: FDA-Public Use
  Company Number: CA-TEVA-799299ACC

PATIENT
  Age: 54 Year
  Sex: Female
  Weight: 57 kg

DRUGS (9)
  1. GEMCITABINE INJECTION SINGLE-USE VIALS 200MG/5.3ML 1G/26.3ML 2G/52.6ML [Suspect]
     Active Substance: GEMCITABINE\GEMCITABINE HYDROCHLORIDE
     Indication: OVARIAN CANCER RECURRENT
     Route: 041
  2. HYDROMORPH CONTIN 30MG [Concomitant]
  3. ZOFRAN [Concomitant]
     Active Substance: ONDANSETRON HYDROCHLORIDE
  4. ZOFRAN [Concomitant]
     Active Substance: ONDANSETRON HYDROCHLORIDE
     Route: 065
  5. EFFEXOR XR [Concomitant]
     Active Substance: VENLAFAXINE HYDROCHLORIDE
  6. CELEBREX 100MG [Concomitant]
  7. DEXILANT [Concomitant]
     Active Substance: DEXLANSOPRAZOLE
  8. GRAVOL [Concomitant]
     Active Substance: DIMENHYDRINATE
  9. LYRICA [Concomitant]
     Active Substance: PREGABALIN

REACTIONS (4)
  - Feeling hot [Recovered/Resolved]
  - Pain in extremity [Recovered/Resolved]
  - Burning sensation [Recovered/Resolved]
  - Sleep disorder [Recovered/Resolved]
